FAERS Safety Report 8051029-6 (Version None)
Quarter: 2012Q1

REPORT INFORMATION
  Report Type: 
  Country: None (occurrence: None)
  Receive Date: 20120117
  Receipt Date: 20120111
  Transmission Date: 20120608
  Serious: Yes (Death, Other)
  Sender: FDA-Public Use
  Company Number: PHEH2011US010404

PATIENT
  Sex: Male

DRUGS (1)
  1. SANDOSTATIN LAR [Suspect]
     Dosage: 20 MG EVERY 4 WEEKS
     Route: 030

REACTIONS (4)
  - DIARRHOEA [None]
  - DEHYDRATION [None]
  - RENAL FAILURE [None]
  - RENAL FAILURE ACUTE [None]
